FAERS Safety Report 20655769 (Version 1)
Quarter: 2022Q1

REPORT INFORMATION
  Report Type: Spontaneous
  Country: US (occurrence: US)
  Receive Date: 20220330
  Receipt Date: 20220330
  Transmission Date: 20220423
  Serious: Yes (Hospitalization, Other)
  Sender: FDA-Public Use
  Company Number: US-SCIEGENP-2022SCLIT00252

PATIENT
  Age: 38 Year
  Sex: Female

DRUGS (1)
  1. ROSUVASTATIN [Suspect]
     Active Substance: ROSUVASTATIN
     Indication: Hypercholesterolaemia
     Dosage: 10 MG FOR 10 YEARS
     Route: 065

REACTIONS (4)
  - Non-alcoholic steatohepatitis [Recovered/Resolved]
  - Rhabdomyolysis [Recovered/Resolved]
  - Haemangioma [Recovered/Resolved]
  - Nausea [Unknown]
